FAERS Safety Report 9812566 (Version 1)
Quarter: 2014Q1

REPORT INFORMATION
  Report Type: Report from Study
  Country: US (occurrence: US)
  Receive Date: 20140113
  Receipt Date: 20140113
  Transmission Date: 20141002
  Serious: Yes (Hospitalization)
  Sender: FDA-Public Use
  Company Number: US-ROCHE-1328094

PATIENT
  Age: 67 Year
  Sex: Female
  Weight: 58 kg

DRUGS (1)
  1. TRASTUZUMAB [Suspect]
     Indication: METASTASES TO MENINGES
     Route: 037
     Dates: start: 20131223, end: 20131226

REACTIONS (2)
  - Somnolence [Not Recovered/Not Resolved]
  - Hydrocephalus [Not Recovered/Not Resolved]
